FAERS Safety Report 5543997-9 (Version None)
Quarter: 2007Q4

REPORT INFORMATION
  Report Type: 
  Country: None (occurrence: None)
  Receive Date: 20071210
  Receipt Date: 20061120
  Transmission Date: 20080405
  Serious: No
  Sender: FDA-Public Use
  Company Number: US-AMGEN-KDL201004

PATIENT
  Sex: Female

DRUGS (3)
  1. ENBREL [Suspect]
     Indication: RHEUMATOID ARTHRITIS
     Route: 058
     Dates: start: 20040201
  2. ENBREL [Suspect]
     Indication: PSORIASIS
  3. ANTIBIOTICS [Concomitant]

REACTIONS (3)
  - FATIGUE [None]
  - PAIN [None]
  - POLLAKIURIA [None]
